FAERS Safety Report 11249258 (Version 1)
Quarter: 2015Q3

REPORT INFORMATION
  Report Type: Spontaneous
  Country: US (occurrence: US)
  Receive Date: 20150708
  Receipt Date: 20150708
  Transmission Date: 20151125
  Serious: Yes (Hospitalization)
  Sender: FDA-Public Use
  Company Number: US-ELI_LILLY_AND_COMPANY-US200910001862

PATIENT
  Age: 60 Year
  Sex: Male

DRUGS (2)
  1. ZOLEDRONIC ACID [Concomitant]
     Active Substance: ZOLEDRONIC ACID
  2. ALIMTA [Suspect]
     Active Substance: PEMETREXED DISODIUM
     Indication: LUNG ADENOCARCINOMA METASTATIC

REACTIONS (3)
  - Platelet count increased [Recovering/Resolving]
  - Blood creatinine increased [Recovering/Resolving]
  - Creatinine renal clearance increased [Recovering/Resolving]

NARRATIVE: CASE EVENT DATE: 20091005
